FAERS Safety Report 20141825 (Version 2)
Quarter: 2021Q4

REPORT INFORMATION
  Report Type: Spontaneous
  Country: US (occurrence: None)
  Receive Date: 20211202
  Receipt Date: 20211215
  Transmission Date: 20220303
  Serious: Yes (Other)
  Sender: FDA-Public Use
  Company Number: 2021A851396

PATIENT

DRUGS (1)
  1. ACALABRUTINIB [Suspect]
     Active Substance: ACALABRUTINIB
     Indication: Chronic lymphocytic leukaemia
     Dosage: UNKNOWN UNKNOWN
     Route: 048

REACTIONS (3)
  - Malignant neoplasm progression [Recovering/Resolving]
  - Neutropenia [Recovering/Resolving]
  - Incorrect dose administered [Recovering/Resolving]
